FAERS Safety Report 16012407 (Version 1)
Quarter: 2019Q1

REPORT INFORMATION
  Report Type: Spontaneous
  Country: US (occurrence: US)
  Receive Date: 20190227
  Receipt Date: 20190227
  Transmission Date: 20190418
  Serious: No
  Sender: FDA-Public Use
  Company Number: US-TEVA-2019-US-1009594

PATIENT
  Sex: Female

DRUGS (1)
  1. COPAXONE [Suspect]
     Active Substance: GLATIRAMER ACETATE
     Indication: MULTIPLE SCLEROSIS
     Dosage: FORM STRENGTH-UNKNOWN
     Route: 065

REACTIONS (6)
  - Loss of personal independence in daily activities [Unknown]
  - Fatigue [Unknown]
  - Ill-defined disorder [Unknown]
  - Asthenia [Unknown]
  - Stress [Unknown]
  - Sleep disorder [Unknown]
